FAERS Safety Report 21735587 (Version 4)
Quarter: 2025Q1

REPORT INFORMATION
  Report Type: Report from Study
  Country: CA (occurrence: CA)
  Receive Date: 20221215
  Receipt Date: 20250207
  Transmission Date: 20250409
  Serious: Yes (Hospitalization, Other)
  Sender: BIOCON
  Company Number: CA-MYLANLABS-2022M1138514

PATIENT

DRUGS (2)
  1. HULIO [Suspect]
     Active Substance: ADALIMUMAB-FKJP
     Indication: Psoriatic arthropathy
     Route: 058
     Dates: start: 20220430
  2. HULIO [Suspect]
     Active Substance: ADALIMUMAB-FKJP
     Route: 058

REACTIONS (9)
  - Pulmonary embolism [Not Recovered/Not Resolved]
  - Intervertebral disc protrusion [Unknown]
  - Spinal compression fracture [Unknown]
  - Behcet^s syndrome [Unknown]
  - Fall [Unknown]
  - Illness [Not Recovered/Not Resolved]
  - Skin discolouration [Unknown]
  - Urinary tract infection [Unknown]
  - Tremor [Unknown]

NARRATIVE: CASE EVENT DATE: 20220826
